FAERS Safety Report 6233436-7 (Version None)
Quarter: 2009Q2

REPORT INFORMATION
  Report Type: 
  Country: None (occurrence: None)
  Receive Date: 20090616
  Receipt Date: 20090616
  Transmission Date: 20091009
  Serious: Yes (Other)
  Sender: FDA-Public Use
  Company Number: None

PATIENT
  Age: 71 Year
  Sex: Female
  Weight: 42.8649 kg

DRUGS (1)
  1. DAPTOMYCIN [Suspect]
     Indication: DIABETIC FOOT
     Dosage: 450 MG 3X/WK POSTDIALVSIS IV
     Route: 042
     Dates: start: 20090602, end: 20090610

REACTIONS (3)
  - DRUG ERUPTION [None]
  - RASH MACULAR [None]
  - SKIN LESION [None]
